FAERS Safety Report 6725242-1 (Version None)
Quarter: 2010Q2

REPORT INFORMATION
  Report Type: 
  Country: None (occurrence: None)
  Receive Date: 20100514
  Receipt Date: 20100503
  Transmission Date: 20101027
  Serious: Yes (Life-Threatening)
  Sender: FDA-Public Use
  Company Number: TR-KINGPHARMUSA00001-K201000545

PATIENT
  Age: 17 Year
  Sex: Male

DRUGS (2)
  1. SEPTRA [Suspect]
     Indication: SUICIDE ATTEMPT
     Dosage: 24 TABLETS (1820 MG/9600 MG), SINGLE
     Route: 048
  2. PROPAFENONE HCL [Suspect]
     Indication: SUICIDE ATTEMPT
     Dosage: 20 TABLETS (6000 MG), SINGLE
     Route: 048

REACTIONS (3)
  - ELECTROCARDIOGRAM QT PROLONGED [None]
  - INTENTIONAL OVERDOSE [None]
  - LOSS OF CONSCIOUSNESS [None]
